FAERS Safety Report 10022861 (Version 1)
Quarter: 2014Q1

REPORT INFORMATION
  Report Type: Report from Study
  Country: DE (occurrence: DE)
  Receive Date: 20140319
  Receipt Date: 20140319
  Transmission Date: 20141002
  Serious: Yes (Hospitalization)
  Sender: FDA-Public Use
  Company Number: DE-ABBVIE-14P-062-1211490-00

PATIENT
  Age: 48 Year
  Sex: Male

DRUGS (3)
  1. KALETRA [Suspect]
     Indication: HIV INFECTION
     Dates: start: 20010101
  2. INVIRASE [Concomitant]
     Indication: HIV INFECTION
  3. COMBIVIR [Concomitant]
     Indication: HIV INFECTION

REACTIONS (3)
  - Cerebral infarction [Recovered/Resolved]
  - Glomerular filtration rate decreased [Not Recovered/Not Resolved]
  - Lipohypertrophy [Not Recovered/Not Resolved]
